FAERS Safety Report 4849441-9 (Version None)
Quarter: 2005Q4

REPORT INFORMATION
  Report Type: 
  Country: None (occurrence: None)
  Receive Date: 20051207
  Receipt Date: 20051124
  Transmission Date: 20060501
  Serious: Yes (Disabling)
  Sender: FDA-Public Use
  Company Number: 2005160801

PATIENT
  Age: 10 Year
  Sex: Male
  Weight: 27 kg

DRUGS (10)
  1. FLUCONAZOLE [Suspect]
     Indication: ILL-DEFINED DISORDER
     Dosage: 400 MG (1 IN 1 D), INTRAVENOUS
     Route: 042
     Dates: start: 20050913, end: 20050916
  2. FLUCONAZOLE [Suspect]
     Indication: ILL-DEFINED DISORDER
     Dosage: 400 MG (1 IN 1 D), INTRAVENOUS
     Route: 042
     Dates: start: 20050922, end: 20051003
  3. FLAGYL [Suspect]
     Indication: ILL-DEFINED DISORDER
     Dosage: SEE IMAGE
     Route: 042
     Dates: start: 20050905, end: 20050909
  4. FLAGYL [Suspect]
     Indication: ILL-DEFINED DISORDER
     Dosage: SEE IMAGE
     Route: 042
     Dates: start: 20050909, end: 20050912
  5. FLAGYL [Suspect]
     Indication: ILL-DEFINED DISORDER
     Dosage: SEE IMAGE
     Route: 042
     Dates: end: 20051003
  6. ATARAX [Suspect]
     Indication: ILL-DEFINED DISORDER
     Dosage: 30 MG (30 MG, 1 IN 1 D), INTRAVENOUS
     Route: 042
     Dates: start: 20050909, end: 20051003
  7. TERCIAN                  (CYAMEMAZINE) [Suspect]
     Indication: ILL-DEFINED DISORDER
     Dosage: 40 DROP (40 DROP, 1 IN 1 D), ORAL
     Route: 048
     Dates: start: 20050914, end: 20051003
  8. OMEPRAZOLE [Suspect]
     Indication: ILL-DEFINED DISORDER
     Dosage: 40 MG (40 MG, 1 IN 1 D), PARENTERAL
     Route: 051
     Dates: start: 20050905, end: 20050925
  9. PARACETAMOL                 (PARACETAMOL) [Concomitant]
  10. CODEINE PHOSPHATE HEMIHYDRATE [Concomitant]

REACTIONS (5)
  - AREFLEXIA [None]
  - EFFUSION [None]
  - HAEMATOMA [None]
  - NEUROPATHY PERIPHERAL [None]
  - PARALYSIS [None]
